FAERS Safety Report 23962295 (Version 1)
Quarter: 2024Q2

REPORT INFORMATION
  Report Type: Spontaneous
  Country: FR (occurrence: FR)
  Receive Date: 20240611
  Receipt Date: 20240611
  Transmission Date: 20240716
  Serious: Yes (Death)
  Sender: FDA-Public Use
  Company Number: FR-002147023-NVSC2024FR093019

PATIENT
  Age: 53 Year
  Sex: Male
  Weight: 74 kg

DRUGS (7)
  1. OXYCODONE HYDROCHLORIDE [Suspect]
     Active Substance: OXYCODONE HYDROCHLORIDE
     Indication: Product used for unknown indication
     Dosage: 40 MILLIGRAM, DAILY(20 MG, BID)
     Route: 048
     Dates: start: 202311
  2. LANREOTIDE ACETATE [Suspect]
     Active Substance: LANREOTIDE ACETATE
     Indication: Product used for unknown indication
     Dosage: 120 MG (EVERY 28 DAYS)
     Route: 058
     Dates: start: 202306
  3. LUTATHERA [Suspect]
     Active Substance: LUTETIUM OXODOTREOTIDE LU-177
     Indication: Product used for unknown indication
     Dosage: 1 TOTAL (UNK, ONCE/SINGLE (4TH ADMINISTRATION))
     Route: 065
     Dates: start: 20240425, end: 20240425
  4. LUTATHERA [Suspect]
     Active Substance: LUTETIUM OXODOTREOTIDE LU-177
     Dosage: 1 TOTAL (UNK, ONCE/SINGLE (2ND ADMINISTRATION))
     Route: 065
     Dates: start: 20240104, end: 20240104
  5. LUTATHERA [Suspect]
     Active Substance: LUTETIUM OXODOTREOTIDE LU-177
     Dosage: 1 TOTAL (UNK, ONCE/SINGLE (1ST ADMINISTRATION))
     Route: 065
     Dates: start: 20231109, end: 20231109
  6. LUTATHERA [Suspect]
     Active Substance: LUTETIUM OXODOTREOTIDE LU-177
     Dosage: 1 TOTAL (UNK, ONCE/SINGLE (3RD ADMINISTRATION))
     Route: 065
     Dates: start: 20240229, end: 20240229
  7. INNOHEP [Suspect]
     Active Substance: TINZAPARIN SODIUM
     Indication: Product used for unknown indication
     Dosage: 10000 IU, QD
     Route: 058
     Dates: start: 202306

REACTIONS (3)
  - Neoplasm progression [Fatal]
  - Starvation [Fatal]
  - Malignant neoplasm progression [Fatal]
